FAERS Safety Report 5271582-5 (Version None)
Quarter: 2007Q1

REPORT INFORMATION
  Report Type: 
  Country: None (occurrence: None)
  Receive Date: 20070321
  Receipt Date: 20070312
  Transmission Date: 20070707
  Serious: Yes (Other)
  Sender: FDA-Public Use
  Company Number: CH-PFIZER INC-2007018384

PATIENT
  Sex: Female
  Weight: 56 kg

DRUGS (4)
  1. XANAX [Suspect]
     Indication: OBSESSIVE THOUGHTS
     Route: 048
  2. CLOZAPINE [Interacting]
     Indication: DELIRIUM
     Route: 048
  3. SOLIAN [Concomitant]
     Route: 048
  4. ANAFRANIL [Concomitant]
     Route: 048

REACTIONS (3)
  - DRUG INTERACTION [None]
  - HYPOTENSION [None]
  - MALAISE [None]
